FAERS Safety Report 6795000-0 (Version None)
Quarter: 2010Q2

REPORT INFORMATION
  Report Type: 
  Country: None (occurrence: None)
  Receive Date: 20100625
  Receipt Date: 20100611
  Transmission Date: 20101027
  Serious: Yes (Other)
  Sender: FDA-Public Use
  Company Number: PHEH2006US10884

PATIENT
  Sex: Female
  Weight: 77.3 kg

DRUGS (19)
  1. AREDIA [Suspect]
     Indication: MULTIPLE MYELOMA
     Dosage: 90 MG, QMO
     Dates: start: 19951101
  2. AREDIA [Suspect]
     Dosage: 90 MG, UNK
     Dates: start: 20020501
  3. ZOMETA [Suspect]
     Dosage: 4 MG, UNK
     Dates: end: 20020501
  4. DEXAMETHASONE [Concomitant]
     Indication: MULTIPLE MYELOMA
     Dosage: 40 MG FOR 4 DAYS MONTHLY
     Route: 048
     Dates: start: 19951101, end: 20000111
  5. INTERFERON [Concomitant]
     Indication: MULTIPLE MYELOMA
     Dates: end: 20000111
  6. THALIDOMIDE [Concomitant]
     Indication: MULTIPLE MYELOMA
     Dosage: 100 MG, QD
     Route: 048
     Dates: start: 20000111
  7. PROCARDIA XL [Concomitant]
     Indication: HYPERTENSION
     Dosage: 30 MG, QD
     Route: 048
  8. BACTRIM DS [Concomitant]
  9. DIFLUCAN [Concomitant]
  10. RESTORIL [Concomitant]
  11. VALTREX [Concomitant]
  12. CLONIDINE [Concomitant]
     Indication: HYPERTENSION
  13. PROCRIT                            /00909301/ [Concomitant]
  14. AXID [Concomitant]
     Dosage: 150 MG, BID
  15. VINCRISTINE [Concomitant]
     Indication: MULTIPLE MYELOMA
     Dates: start: 19951201, end: 19960301
  16. ADRIAMYCIN PFS [Concomitant]
     Indication: MULTIPLE MYELOMA
     Dates: start: 19951201, end: 19960301
  17. MELPHALAN HYDROCHLORIDE [Concomitant]
     Dates: start: 19961001
  18. MELPHALAN HYDROCHLORIDE [Concomitant]
     Dates: start: 19970201
  19. EPOGEN [Concomitant]
     Dosage: UNK, PRN

REACTIONS (48)
  - ABDOMINAL PAIN [None]
  - ABSCESS [None]
  - ALKALOSIS [None]
  - ANXIETY [None]
  - APLASTIC ANAEMIA [None]
  - ATELECTASIS [None]
  - BLINDNESS [None]
  - BONE DEBRIDEMENT [None]
  - DECREASED INTEREST [None]
  - DIZZINESS [None]
  - EXCESSIVE GRANULATION TISSUE [None]
  - GALLBLADDER DISORDER [None]
  - GENERAL PHYSICAL HEALTH DETERIORATION [None]
  - GRANULOMA [None]
  - HEADACHE [None]
  - HYDROCEPHALUS [None]
  - HYPERTENSION [None]
  - HYPOKALAEMIA [None]
  - HYSTERECTOMY [None]
  - INFLAMMATION [None]
  - JOINT SURGERY [None]
  - LYMPHADENOPATHY [None]
  - MUCOSAL INFLAMMATION [None]
  - MULTIPLE SCLEROSIS [None]
  - NAUSEA [None]
  - NUCLEAR MAGNETIC RESONANCE IMAGING BRAIN [None]
  - OPTIC NEURITIS [None]
  - OSTEOARTHRITIS [None]
  - OSTEOMYELITIS [None]
  - OSTEONECROSIS OF JAW [None]
  - PAIN [None]
  - PARANASAL SINUS BENIGN NEOPLASM [None]
  - PATHOLOGICAL FRACTURE [None]
  - PLEURAL EFFUSION [None]
  - PNEUMONIA [None]
  - PULMONARY ARTERY DILATATION [None]
  - PULMONARY OEDEMA [None]
  - PYREXIA [None]
  - RENAL DISORDER [None]
  - RIGHT VENTRICULAR HYPERTROPHY [None]
  - SALPINGO-OOPHORECTOMY BILATERAL [None]
  - SARCOIDOSIS [None]
  - SWELLING [None]
  - TOOTH EXTRACTION [None]
  - TUBERCULOSIS [None]
  - UTERINE LEIOMYOMA [None]
  - VISUAL IMPAIRMENT [None]
  - VOMITING [None]
